FAERS Safety Report 22114313 (Version 3)
Quarter: 2023Q2

REPORT INFORMATION
  Report Type: Spontaneous
  Country: CA (occurrence: CA)
  Receive Date: 20230320
  Receipt Date: 20230516
  Transmission Date: 20230721
  Serious: Yes (Other)
  Sender: FDA-Public Use
  Company Number: CA-CELLTRION INC.-2022CA006660

PATIENT

DRUGS (3)
  1. INFLECTRA [Suspect]
     Active Substance: INFLIXIMAB-DYYB
     Indication: Ankylosing spondylitis
     Dosage: 10 MG/KG,EVERY 6 WEEKS
     Route: 042
     Dates: start: 20220429
  2. METHOTREXATE [Concomitant]
     Active Substance: METHOTREXATE
     Dosage: UNK,SUSPENDED METHOTREXATE FOR A WEEK
  3. MESALAMINE [Concomitant]
     Active Substance: MESALAMINE
     Dosage: UNK

REACTIONS (4)
  - Umbilical hernia [Unknown]
  - Off label use [Unknown]
  - Off label use [Unknown]
  - Product use issue [Unknown]
